FAERS Safety Report 24770906 (Version 1)
Quarter: 2024Q4

REPORT INFORMATION
  Report Type: Spontaneous
  Country: IT (occurrence: IT)
  Receive Date: 20241224
  Receipt Date: 20241224
  Transmission Date: 20250115
  Serious: Yes (Other)
  Sender: ASTELLAS
  Company Number: IT-ASTELLAS-2024-AER-025750

PATIENT
  Sex: Male

DRUGS (3)
  1. MIRABEGRON [Interacting]
     Active Substance: MIRABEGRON
     Indication: Hypertonic bladder
     Route: 065
     Dates: start: 201406
  2. DABIGATRAN [Interacting]
     Active Substance: DABIGATRAN
     Indication: Atrial fibrillation
     Route: 065
     Dates: start: 201405
  3. DABIGATRAN [Interacting]
     Active Substance: DABIGATRAN
     Indication: Ischaemic stroke
     Route: 065

REACTIONS (3)
  - Cardiac failure acute [Unknown]
  - Creatinine renal clearance decreased [Unknown]
  - Drug interaction [Unknown]
